FAERS Safety Report 6257893-5 (Version None)
Quarter: 2009Q3

REPORT INFORMATION
  Report Type: 
  Country: None (occurrence: None)
  Receive Date: 20090707
  Receipt Date: 20090624
  Transmission Date: 20100115
  Serious: Yes (Other)
  Sender: FDA-Public Use
  Company Number: JP-PFIZER INC-2009229468

PATIENT
  Age: 84 Year

DRUGS (1)
  1. SOLU-MEDROL [Suspect]
     Dosage: 500MG ONCE DAILY X 2 DAYS

REACTIONS (1)
  - BLOOD CREATININE INCREASED [None]
